FAERS Safety Report 12965014 (Version 1)
Quarter: 2016Q4

REPORT INFORMATION
  Report Type: Spontaneous
  Country: US (occurrence: US)
  Receive Date: 20161122
  Receipt Date: 20161122
  Transmission Date: 20170207
  Serious: No
  Sender: FDA-Public Use
  Company Number: US-ALLERGAN-1666067US

PATIENT
  Age: 58 Year
  Sex: Female

DRUGS (1)
  1. KYBELLA [Suspect]
     Active Substance: DEOXYCHOLIC ACID
     Indication: FAT TISSUE INCREASED
     Dosage: 40 MG, SINGLE
     Route: 058
     Dates: start: 20160712, end: 20160712

REACTIONS (4)
  - Neuropathy peripheral [Unknown]
  - Sensory loss [Not Recovered/Not Resolved]
  - Nerve injury [Unknown]
  - Impetigo [Unknown]

NARRATIVE: CASE EVENT DATE: 20160716
